FAERS Safety Report 6675020-7 (Version None)
Quarter: 2010Q2

REPORT INFORMATION
  Report Type: 
  Country: None (occurrence: None)
  Receive Date: 20100409
  Receipt Date: 20100401
  Transmission Date: 20101027
  Serious: Yes (Life-Threatening, Hospitalization)
  Sender: FDA-Public Use
  Company Number: JP-MERCK-1004USA00347

PATIENT
  Age: 79 Year
  Sex: Male

DRUGS (5)
  1. COZAAR [Suspect]
     Route: 048
     Dates: end: 20100326
  2. AMARYL [Suspect]
     Indication: DIABETES MELLITUS
     Route: 048
  3. ASPIRIN [Suspect]
     Route: 048
  4. PREDONINE [Suspect]
     Route: 048
  5. GLUCOBAY [Suspect]
     Route: 048

REACTIONS (3)
  - CONVULSION [None]
  - HYPOGLYCAEMIA [None]
  - PUPIL FIXED [None]
